FAERS Safety Report 19855991 (Version 1)
Quarter: 2021Q3

REPORT INFORMATION
  Report Type: Spontaneous
  Country: IT (occurrence: IT)
  Receive Date: 20210920
  Receipt Date: 20210920
  Transmission Date: 20211014
  Serious: Yes (Other)
  Sender: FDA-Public Use
  Company Number: IT-OTSUKA-2021_032040

PATIENT

DRUGS (10)
  1. BUSULFAN. [Suspect]
     Active Substance: BUSULFAN
     Indication: BONE MARROW CONDITIONING REGIMEN
     Dosage: UNK, QD
     Route: 042
  2. THIOTEPA. [Suspect]
     Active Substance: THIOTEPA
     Indication: BONE MARROW CONDITIONING REGIMEN
     Dosage: 5 MG/KG ON DAY ?6
     Route: 065
  3. FLUDARABINE [Suspect]
     Active Substance: FLUDARABINE PHOSPHATE
     Indication: BONE MARROW CONDITIONING REGIMEN
     Dosage: 40 MG/M2/DAY FOR 4 DAYS(FROM DAY?5 TO DAY?2)
     Route: 065
  4. BUSULFAN. [Suspect]
     Active Substance: BUSULFAN
     Indication: AUTOLOGOUS HAEMATOPOIETIC STEM CELL TRANSPLANT
  5. BUSULFAN. [Suspect]
     Active Substance: BUSULFAN
     Indication: HAEMATOLOGICAL MALIGNANCY
  6. THIOTEPA. [Suspect]
     Active Substance: THIOTEPA
     Indication: AUTOLOGOUS HAEMATOPOIETIC STEM CELL TRANSPLANT
  7. THIOTEPA. [Suspect]
     Active Substance: THIOTEPA
     Indication: HAEMATOLOGICAL MALIGNANCY
  8. FLUDARABINE [Suspect]
     Active Substance: FLUDARABINE PHOSPHATE
     Indication: HAEMATOLOGICAL MALIGNANCY
  9. FLUDARABINE [Suspect]
     Active Substance: FLUDARABINE PHOSPHATE
     Indication: AUTOLOGOUS HAEMATOPOIETIC STEM CELL TRANSPLANT
  10. CYCLOPHOSPHAMIDE. [Suspect]
     Active Substance: CYCLOPHOSPHAMIDE
     Indication: PROPHYLAXIS AGAINST GRAFT VERSUS HOST DISEASE
     Dosage: UNK
     Route: 065

REACTIONS (3)
  - Nephropathy toxic [Unknown]
  - Urinary tract infection [Unknown]
  - BK virus infection [Unknown]
